FAERS Safety Report 25722702 (Version 1)
Quarter: 2025Q3

REPORT INFORMATION
  Report Type: Spontaneous
  Country: GB (occurrence: GB)
  Receive Date: 20250825
  Receipt Date: 20250825
  Transmission Date: 20251021
  Serious: Yes (Death, Life-Threatening, Other)
  Sender: ACCORD
  Company Number: None

PATIENT
  Sex: Male

DRUGS (1)
  1. SERTRALINE [Suspect]
     Active Substance: SERTRALINE HYDROCHLORIDE
     Indication: Anxiety
     Dates: start: 20250601

REACTIONS (6)
  - Tachyphrenia [Unknown]
  - Dry mouth [Unknown]
  - Poor quality sleep [Unknown]
  - Vision blurred [Unknown]
  - Suicidal ideation [Unknown]
  - Completed suicide [Fatal]

NARRATIVE: CASE EVENT DATE: 20250726
